FAERS Safety Report 15353878 (Version 11)
Quarter: 2021Q2

REPORT INFORMATION
  Report Type: Spontaneous
  Country: US (occurrence: US)
  Receive Date: 20180905
  Receipt Date: 20210511
  Transmission Date: 20210716
  Serious: Yes (Hospitalization, Other)
  Sender: FDA-Public Use
  Company Number: US-VIFOR (INTERNATIONAL) INC.-VIT-2018-08664

PATIENT
  Age: 56 Year
  Sex: Female

DRUGS (15)
  1. FUROSEMIDE. [Concomitant]
     Active Substance: FUROSEMIDE
  2. CALCIUM [Concomitant]
     Active Substance: CALCIUM
  3. HYDROCODONE/ACETAMINOPHEN [Concomitant]
     Active Substance: ACETAMINOPHEN\HYDROCODONE
  4. DEPAKOTE [Concomitant]
     Active Substance: DIVALPROEX SODIUM
  5. WELLBUTRIN [Concomitant]
     Active Substance: BUPROPION HYDROCHLORIDE
  6. NEURONTIN [Concomitant]
     Active Substance: GABAPENTIN
  7. VELTASSA [Suspect]
     Active Substance: PATIROMER
     Indication: HYPERKALAEMIA
     Route: 048
     Dates: start: 20160722
  8. RISPERDAL [Concomitant]
     Active Substance: RISPERIDONE
  9. METOPROLOL TARTRATE. [Concomitant]
     Active Substance: METOPROLOL TARTRATE
  10. VELTASSA [Suspect]
     Active Substance: PATIROMER
     Dosage: 2 PACKETS
     Route: 048
  11. MIRALAX [Concomitant]
     Active Substance: POLYETHYLENE GLYCOL 3350
  12. NEXIUM [Concomitant]
     Active Substance: ESOMEPRAZOLE MAGNESIUM
  13. VELTASSA [Suspect]
     Active Substance: PATIROMER
     Route: 048
  14. XARELTO [Concomitant]
     Active Substance: RIVAROXABAN
  15. CHOLECALCIFEROL [Concomitant]
     Active Substance: CHOLECALCIFEROL

REACTIONS (16)
  - Laboratory test abnormal [Unknown]
  - Off label use [Unknown]
  - Internal haemorrhage [Unknown]
  - Sepsis [Unknown]
  - Nephrolithiasis [Not Recovered/Not Resolved]
  - Fall [Not Recovered/Not Resolved]
  - Hospitalisation [Unknown]
  - Sinusitis [Unknown]
  - Migraine [Unknown]
  - Haemorrhoids [Unknown]
  - Cerebrovascular accident [Unknown]
  - Cholecystectomy [Unknown]
  - Back injury [Not Recovered/Not Resolved]
  - Mastitis [Unknown]
  - Blood potassium increased [Unknown]
  - Knee operation [Unknown]

NARRATIVE: CASE EVENT DATE: 2020
